FAERS Safety Report 7861252-9 (Version None)
Quarter: 2011Q4

REPORT INFORMATION
  Report Type: 
  Country: None (occurrence: None)
  Receive Date: 20111026
  Receipt Date: 20111014
  Transmission Date: 20120403
  Serious: Yes (Other)
  Sender: FDA-Public Use
  Company Number: 2011SP038329

PATIENT

DRUGS (10)
  1. REBETOL [Suspect]
     Indication: HEPATITIS C
     Dosage: 1200 MG;QD
  2. REBETOL [Concomitant]
  3. RIBAVIRIN [Concomitant]
  4. VIRAFERONPEG [Suspect]
     Indication: HEPATITIS C
     Dosage: 150 MCG;QW
  5. VIRAFERONPEG [Concomitant]
  6. PEGASYS [Concomitant]
  7. LERCANIDIPINE [Concomitant]
  8. CIALIS [Concomitant]
  9. BOCEPREVIR (SCH-503034) [Suspect]
     Indication: HEPATITIS C
     Dates: start: 20110701
  10. ESIDRIX [Concomitant]

REACTIONS (5)
  - CONSTIPATION [None]
  - ANTINEUTROPHIL CYTOPLASMIC ANTIBODY INCREASED [None]
  - VITREOUS FLOATERS [None]
  - ILEUS PARALYTIC [None]
  - RETINAL HAEMORRHAGE [None]
